FAERS Safety Report 18210483 (Version 1)
Quarter: 2020Q3

REPORT INFORMATION
  Report Type: Spontaneous
  Country: US (occurrence: US)
  Receive Date: 20200829
  Receipt Date: 20200829
  Transmission Date: 20201103
  Serious: No
  Sender: FDA-Public Use
  Company Number: US-ENDO PHARMACEUTICALS INC-2019-110125

PATIENT
  Sex: Female
  Weight: 81.65 kg

DRUGS (2)
  1. PREDNISONE. [Suspect]
     Active Substance: PREDNISONE
     Dosage: 40 MG, DAILY (TAPERING OFF OF THE PREDNISONE)
     Route: 065
  2. PREDNISONE. [Suspect]
     Active Substance: PREDNISONE
     Indication: PRODUCT USED FOR UNKNOWN INDICATION
     Dosage: 60 MG, DAILY
     Route: 065

REACTIONS (2)
  - Blood creatine phosphokinase increased [Unknown]
  - Drug ineffective [Unknown]
